FAERS Safety Report 8513666-1 (Version None)
Quarter: 2012Q3

REPORT INFORMATION
  Report Type: 
  Country: None (occurrence: None)
  Receive Date: 20120717
  Receipt Date: 20120706
  Transmission Date: 20120928
  Serious: No
  Sender: FDA-Public Use
  Company Number: US-PFIZER INC-2009273517

PATIENT
  Sex: Female

DRUGS (2)
  1. LIPITOR [Suspect]
     Dosage: UNK
  2. LIPITOR [Suspect]
     Dosage: 20 MG, 1X/DAY
     Dates: start: 20060301

REACTIONS (5)
  - LIVER FUNCTION TEST ABNORMAL [None]
  - VISION BLURRED [None]
  - BLOOD GLUCOSE INCREASED [None]
  - MYALGIA [None]
  - BLOOD PRESSURE DECREASED [None]
